FAERS Safety Report 4373427-4 (Version None)
Quarter: 2004Q2

REPORT INFORMATION
  Report Type: 
  Country: None (occurrence: None)
  Receive Date: 20040608
  Receipt Date: 20040602
  Transmission Date: 20050107
  Serious: Yes (Disabling)
  Sender: FDA-Public Use
  Company Number: US-MERCK-0406USA00215

PATIENT
  Age: 69 Year
  Sex: Female

DRUGS (3)
  1. INDERAL [Concomitant]
     Route: 065
  2. ACTONEL [Concomitant]
     Route: 065
  3. ZOCOR [Suspect]
     Indication: BLOOD CHOLESTEROL INCREASED
     Route: 048
     Dates: start: 20040309

REACTIONS (3)
  - BLOOD PRESSURE DECREASED [None]
  - HAEMATOCHEZIA [None]
  - RASH [None]
